FAERS Safety Report 25640451 (Version 2)
Quarter: 2025Q3

REPORT INFORMATION
  Report Type: Spontaneous
  Country: US (occurrence: US)
  Receive Date: 20250804
  Receipt Date: 20250812
  Transmission Date: 20251021
  Serious: Yes (Life-Threatening, Hospitalization)
  Sender: TEVA
  Company Number: US-TEVA-VS-3358652

PATIENT
  Age: 32 Year
  Sex: Male

DRUGS (1)
  1. FENTANYL [Suspect]
     Active Substance: FENTANYL
     Indication: Drug abuse
     Route: 042

REACTIONS (8)
  - Acute hepatic failure [Unknown]
  - Disseminated intravascular coagulation [Unknown]
  - Nervous system disorder [Unknown]
  - Ventricular fibrillation [Unknown]
  - Drug abuse [Unknown]
  - Acute kidney injury [Unknown]
  - Peripheral ischaemia [Unknown]
  - Necrotising fasciitis [Unknown]
